FAERS Safety Report 8431869-1 (Version None)
Quarter: 2012Q2

REPORT INFORMATION
  Report Type: 
  Country: None (occurrence: None)
  Receive Date: 20120607
  Receipt Date: 20120607
  Transmission Date: 20120825
  Serious: No
  Sender: FDA-Public Use
  Company Number: None

PATIENT
  Sex: Male
  Weight: 72.1673 kg

DRUGS (1)
  1. CELEXA [Suspect]
     Dosage: 40 MG
     Dates: start: 20090809, end: 20120601

REACTIONS (4)
  - BLOOD POTASSIUM DECREASED [None]
  - ELECTROCARDIOGRAM QT PROLONGED [None]
  - BLOOD MAGNESIUM DECREASED [None]
  - INFECTION [None]
